FAERS Safety Report 8259272 (Version 7)
Quarter: 2013Q3

REPORT INFORMATION
  Report Type: Spontaneous
  Country: CA (occurrence: CA)
  Receive Date: 20111122
  Receipt Date: 20130820
  Transmission Date: 20140515
  Serious: Yes (Death, Hospitalization, Other)
  Sender: FDA-Public Use
  Company Number: CA-SANOFI-AVENTIS-2011SA075140

PATIENT
  Age: 63 Year
  Sex: Male

DRUGS (9)
  1. LASIX [Suspect]
     Dates: end: 20111020
  2. METOLAZONE [Suspect]
     Dates: end: 20111020
  3. BLINDED THERAPY [Suspect]
     Indication: TYPE 2 DIABETES MELLITUS
     Dates: start: 20101103, end: 20120303
  4. METFORMIN [Suspect]
     Indication: TYPE 2 DIABETES MELLITUS
     Dates: end: 20110201
  5. METFORMIN [Suspect]
     Indication: TYPE 2 DIABETES MELLITUS
     Dates: start: 20110201
  6. NOVORAPID [Suspect]
     Indication: TYPE 2 DIABETES MELLITUS
  7. NPH INSULIN [Suspect]
     Indication: TYPE 2 DIABETES MELLITUS
  8. PLACEBO [Suspect]
     Indication: TYPE 2 DIABETES MELLITUS
     Dates: start: 20101103
  9. TYLENOL [Concomitant]
     Dates: start: 20111014, end: 20111021

REACTIONS (9)
  - Cardiogenic shock [Fatal]
  - Renal failure acute [Recovered/Resolved]
  - Acute prerenal failure [Recovered/Resolved]
  - Hepatic function abnormal [Not Recovered/Not Resolved]
  - Cardiac failure congestive [Recovered/Resolved]
  - Dyspnoea [Recovered/Resolved]
  - Back pain [Recovered/Resolved]
  - Pneumonia [Not Recovered/Not Resolved]
  - Infection [Unknown]
